FAERS Safety Report 7075499-5 (Version None)
Quarter: 2010Q4

REPORT INFORMATION
  Report Type: 
  Country: None (occurrence: None)
  Receive Date: 20101030
  Receipt Date: 20100923
  Transmission Date: 20110411
  Serious: No
  Sender: FDA-Public Use
  Company Number: US-WYE-H17766810

PATIENT
  Sex: Female
  Weight: 82.63 kg

DRUGS (9)
  1. PRISTIQ [Suspect]
     Indication: DEPRESSION
     Route: 048
     Dates: start: 20091101
  2. ATENOLOL [Concomitant]
  3. TRAZODONE [Concomitant]
  4. MULTI-VITAMINS [Concomitant]
  5. DESIPRAMINE HCL [Concomitant]
  6. FISH OIL [Concomitant]
  7. MULTIVITAMIN [Concomitant]
  8. HYDROCHLOROTHIAZIDE [Suspect]
     Dosage: UNKNOWN
     Dates: end: 20100901
  9. ACETYLSALICYLIC ACID SRT [Concomitant]

REACTIONS (2)
  - ALOPECIA [None]
  - ERYTHEMA NODOSUM [None]
